FAERS Safety Report 17013153 (Version 1)
Quarter: 2019Q4

REPORT INFORMATION
  Report Type: Spontaneous
  Country: US (occurrence: US)
  Receive Date: 20191002
  Receipt Date: 20191002
  Transmission Date: 20200122
  Serious: Yes (Death)
  Sender: FDA-Public Use
  Company Number: None

PATIENT
  Age: 72 Year
  Sex: Female

DRUGS (16)
  1. TADALAFIL. [Concomitant]
     Active Substance: TADALAFIL
  2. ASPIRIN. [Concomitant]
     Active Substance: ASPIRIN
  3. PRANDIN [Concomitant]
     Active Substance: REPAGLINIDE
  4. VITAMIN D3 [Concomitant]
     Active Substance: CHOLECALCIFEROL
  5. LASIX [Concomitant]
     Active Substance: FUROSEMIDE
  6. LETROZOLE. [Concomitant]
     Active Substance: LETROZOLE
  7. PROLIA [Concomitant]
     Active Substance: DENOSUMAB
  8. OSCAL [Concomitant]
     Active Substance: CALCIUM CARBONATE
  9. DIGOXIN. [Concomitant]
     Active Substance: DIGOXIN
  10. METOPROLOL. [Concomitant]
     Active Substance: METOPROLOL
  11. PREDNISONE. [Concomitant]
     Active Substance: PREDNISONE
  12. SINGULAIR [Concomitant]
     Active Substance: MONTELUKAST SODIUM
  13. ESBRIET [Suspect]
     Active Substance: PIRFENIDONE
     Indication: IDIOPATHIC PULMONARY FIBROSIS
     Route: 048
     Dates: start: 20180520
  14. GABAPENTIN. [Concomitant]
     Active Substance: GABAPENTIN
  15. POT CL MICRO [Concomitant]
  16. XYZAL [Concomitant]
     Active Substance: LEVOCETIRIZINE DIHYDROCHLORIDE

REACTIONS (1)
  - Death [None]
